FAERS Safety Report 23614026 (Version 1)
Quarter: 2024Q1

REPORT INFORMATION
  Report Type: Spontaneous
  Country: PT (occurrence: PT)
  Receive Date: 20240310
  Receipt Date: 20240310
  Transmission Date: 20240410
  Serious: Yes (Other)
  Sender: FDA-Public Use
  Company Number: PT-PRINSTON PHARMACEUTICAL INC.-2024PRN00097

PATIENT
  Age: 86 Year
  Sex: Female

DRUGS (3)
  1. RISPERIDONE [Suspect]
     Active Substance: RISPERIDONE
     Indication: Psychiatric care
  2. CEFTRIAXONE [Suspect]
     Active Substance: CEFTRIAXONE\CEFTRIAXONE SODIUM
     Indication: Leukocyturia
  3. LORAZEPAM [Concomitant]
     Active Substance: LORAZEPAM
     Indication: Psychiatric care

REACTIONS (1)
  - Drug-induced liver injury [Recovering/Resolving]
